FAERS Safety Report 19597671 (Version 1)
Quarter: 2021Q3

REPORT INFORMATION
  Report Type: Spontaneous
  Country: US (occurrence: US)
  Receive Date: 20210723
  Receipt Date: 20210723
  Transmission Date: 20211014
  Serious: No
  Sender: FDA-Public Use
  Company Number: US-SA-2021SA238294

PATIENT
  Age: 51 Year
  Sex: Female

DRUGS (3)
  1. DUPIXENT [Suspect]
     Active Substance: DUPILUMAB
     Indication: NEURODERMATITIS
  2. COVID?19 VACCINE [Concomitant]
     Indication: COVID-19 IMMUNISATION
  3. DUPIXENT [Suspect]
     Active Substance: DUPILUMAB
     Indication: DERMATITIS ATOPIC
     Dosage: 300 MG, QOW
     Route: 058
     Dates: start: 201909

REACTIONS (5)
  - Wound [Unknown]
  - Pain [Unknown]
  - Pruritus [Unknown]
  - Tinea pedis [Unknown]
  - Blister [Unknown]

NARRATIVE: CASE EVENT DATE: 202104
